FAERS Safety Report 7290117-9 (Version None)
Quarter: 2011Q1

REPORT INFORMATION
  Report Type: 
  Country: None (occurrence: None)
  Receive Date: 20110214
  Receipt Date: 20110207
  Transmission Date: 20110831
  Serious: Yes (Other)
  Sender: FDA-Public Use
  Company Number: JP-BRISTOL-MYERS SQUIBB COMPANY-15525371

PATIENT
  Age: 66 Year
  Sex: Female

DRUGS (4)
  1. IRBETAN [Suspect]
     Indication: HYPERTENSION
     Route: 048
     Dates: start: 20090803
  2. INSULIN ASPART [Concomitant]
     Dates: start: 20090803
  3. NORVASC [Concomitant]
     Indication: HYPERTENSION
     Dates: start: 20090803
  4. INSULIN DETEMIR [Concomitant]
     Dates: start: 20091006

REACTIONS (1)
  - PROTEINURIA [None]
